FAERS Safety Report 5934902-1 (Version None)
Quarter: 2008Q4

REPORT INFORMATION
  Report Type: 
  Country: None (occurrence: None)
  Receive Date: 20081027
  Receipt Date: 20081014
  Transmission Date: 20090506
  Serious: Yes (Other)
  Sender: FDA-Public Use
  Company Number: ZYD-AE-08-145

PATIENT
  Sex: Male

DRUGS (1)
  1. METFORMIN HCL [Suspect]
     Indication: TYPE 2 DIABETES MELLITUS
     Dosage: 500MG - BID - PO
     Route: 048
     Dates: end: 20080820

REACTIONS (8)
  - CONSTIPATION [None]
  - DIARRHOEA [None]
  - EARLY SATIETY [None]
  - HYPERHIDROSIS [None]
  - NIGHTMARE [None]
  - T-LYMPHOCYTE COUNT DECREASED [None]
  - VIRAL LOAD INCREASED [None]
  - WEIGHT DECREASED [None]
